FAERS Safety Report 6156519-9 (Version None)
Quarter: 2009Q2

REPORT INFORMATION
  Report Type: 
  Country: None (occurrence: None)
  Receive Date: 20090416
  Receipt Date: 20090413
  Transmission Date: 20091009
  Serious: Yes (Death, Hospitalization)
  Sender: FDA-Public Use
  Company Number: ES-WYE-G03380909

PATIENT
  Age: 52 Year
  Sex: Male

DRUGS (2)
  1. TORISEL [Suspect]
     Indication: RENAL CANCER
     Route: 042
     Dates: start: 20090220, end: 20090220
  2. POLARAMINE [Concomitant]
     Indication: PROPHYLAXIS
     Dosage: UNKNOWN
     Dates: start: 20090220, end: 20090220

REACTIONS (1)
  - ENCEPHALITIS [None]
